FAERS Safety Report 21968514 (Version 2)
Quarter: 2023Q1

REPORT INFORMATION
  Report Type: Other
  Country: US (occurrence: None)
  Receive Date: 20230208
  Receipt Date: 20230213
  Transmission Date: 20230418
  Serious: Yes (Hospitalization)
  Sender: FDA-Public Use
  Company Number: US-ROCHE-3280713

PATIENT
  Age: 71 Year
  Sex: Male

DRUGS (13)
  1. OCREVUS [Suspect]
     Active Substance: OCRELIZUMAB
     Indication: Relapsing multiple sclerosis
     Route: 065
     Dates: start: 20190427, end: 202205
  2. OCREVUS [Suspect]
     Active Substance: OCRELIZUMAB
     Dosage: 600 MG EVERY 6 MONTHS,
     Route: 065
     Dates: start: 20180829
  3. WARFARIN [Concomitant]
     Active Substance: WARFARIN
  4. TAMSULOSIN [Concomitant]
     Active Substance: TAMSULOSIN
  5. PROVENTIL [Concomitant]
     Active Substance: ALBUTEROL
  6. MS CONTIN [Concomitant]
     Active Substance: MORPHINE SULFATE
  7. GABAPENTIN [Concomitant]
     Active Substance: GABAPENTIN
  8. VITAMIN D2 [Concomitant]
     Active Substance: ERGOCALCIFEROL
  9. DIAZEPAM [Concomitant]
     Active Substance: DIAZEPAM
  10. DESVENLAFAXINE SUCCINATE [Concomitant]
     Active Substance: DESVENLAFAXINE SUCCINATE
  11. BACLOFEN [Concomitant]
     Active Substance: BACLOFEN
  12. ATORVASTATIN [Concomitant]
     Active Substance: ATORVASTATIN
  13. ACETAMINOPHEN [Concomitant]
     Active Substance: ACETAMINOPHEN

REACTIONS (1)
  - Urinary tract infection [Not Recovered/Not Resolved]

NARRATIVE: CASE EVENT DATE: 20220501
